FAERS Safety Report 17489960 (Version 1)
Quarter: 2020Q1

REPORT INFORMATION
  Report Type: Spontaneous
  Country: US (occurrence: US)
  Receive Date: 20200303
  Receipt Date: 20200303
  Transmission Date: 20200409
  Serious: No
  Sender: FDA-Public Use
  Company Number: US-AKORN PHARMACEUTICALS-2019AKN02297

PATIENT
  Age: 14 Year
  Sex: Female
  Weight: 47.62 kg

DRUGS (4)
  1. MYORISAN [Suspect]
     Active Substance: ISOTRETINOIN
     Indication: ACNE
     Dosage: 40 MG, 1X/DAY
     Route: 048
     Dates: start: 2019
  2. UNSPECIFIED FACE WASH [Suspect]
     Active Substance: UNSPECIFIED INGREDIENT
     Dosage: UNK
     Dates: start: 2019
  3. ROSE HIP OIL (DIETARY SUPPLEMENT) [Suspect]
     Active Substance: DIETARY SUPPLEMENT
     Dosage: UNK
     Dates: start: 20191012
  4. MYORISAN [Suspect]
     Active Substance: ISOTRETINOIN
     Indication: ACNE
     Dosage: 30 MG, 1X/DAY FOR 2 MONTHS
     Route: 048
     Dates: start: 2019, end: 2019

REACTIONS (5)
  - Burning sensation [Unknown]
  - Neuralgia [Unknown]
  - Rash [Recovered/Resolved]
  - Off label use [Not Recovered/Not Resolved]
  - Paraesthesia [Unknown]

NARRATIVE: CASE EVENT DATE: 201909
